FAERS Safety Report 20645170 (Version 1)
Quarter: 2022Q1

REPORT INFORMATION
  Report Type: Spontaneous
  Country: IL (occurrence: IL)
  Receive Date: 20220328
  Receipt Date: 20220328
  Transmission Date: 20220423
  Serious: Yes (Death)
  Sender: FDA-Public Use
  Company Number: IL-PFIZER INC-202200467592

PATIENT
  Age: 97 Year
  Sex: Male

DRUGS (16)
  1. PAXLOVID [Suspect]
     Active Substance: NIRMATRELVIR\RITONAVIR
     Indication: COVID-19 treatment
  2. AKTIFERRIN COMP [Concomitant]
  3. ALLOPURINOL [Concomitant]
     Active Substance: ALLOPURINOL
  4. BISOPROLOL FUMARATE [Concomitant]
     Active Substance: BISOPROLOL FUMARATE
  5. DIULO [Concomitant]
     Active Substance: METOLAZONE
  6. FUROSEMIDE [Concomitant]
     Active Substance: FUROSEMIDE
  7. LERCANIDIPINE [Concomitant]
     Active Substance: LERCANIDIPINE
  8. ISOSORBIDE MONONITRATE [Concomitant]
     Active Substance: ISOSORBIDE MONONITRATE
  9. RAMIPRIL [Concomitant]
     Active Substance: RAMIPRIL
  10. TAMSULOSIN HYDROCHLORIDE [Concomitant]
     Active Substance: TAMSULOSIN HYDROCHLORIDE
     Dosage: 0.4
  11. CADEX [BICALUTAMIDE] [Concomitant]
     Dosage: 2 MG
  12. LACTULOSE [Concomitant]
     Active Substance: LACTULOSE
  13. BISOPROLOL FUMARATE [Concomitant]
     Active Substance: BISOPROLOL FUMARATE
     Dosage: 5
  14. OMEPRAZOLE [Concomitant]
     Active Substance: OMEPRAZOLE
     Dosage: 20 MG
  15. TRAVATAN [Concomitant]
     Active Substance: TRAVOPROST
  16. ELIQUIS [Concomitant]
     Active Substance: APIXABAN
     Dosage: 5 MG

REACTIONS (3)
  - Hepatic enzyme increased [Fatal]
  - Hypotension [Fatal]
  - Depressed level of consciousness [Fatal]
